FAERS Safety Report 8217180 (Version 3)
Quarter: 2012Q4

REPORT INFORMATION
  Report Type: Spontaneous
  Country: US (occurrence: None)
  Receive Date: 20111024
  Receipt Date: 20121115
  Transmission Date: 20130627
  Serious: Yes (Hospitalization)
  Sender: FDA-Public Use
  Company Number: JPI-P-017445

PATIENT
  Age: 42 Year
  Sex: Female
  Weight: 78.02 kg

DRUGS (14)
  1. XYREM (500 MILLIGRAM/MILLILITERS, SOLUTION) (SODIUM OXYBATE) [Suspect]
     Indication: CATAPLEXY
     Dosage: 4.5 gm (2.25 gm, 2 in 1 D), Oral
     Dates: start: 20100803
  2. XYREM (500 MILLIGRAM/MILLILITERS, SOLUTION) (SODIUM OXYBATE) [Suspect]
     Indication: CATAPLEXY
     Dosage: 6 gm (3 gm, 2 in 1 D), Oral
  3. XYREM (500 MILLIGRAM/MILLILITERS, SOLUTION) (SODIUM OXYBATE) [Suspect]
     Indication: CATAPLEXY
     Dosage: 7.5 gm (3.75 gm, 2 in 1 D), Oral
  4. XYREM (500 MILLIGRAM/MILLILITERS, SOLUTION) (SODIUM OXYBATE) [Suspect]
     Indication: CATAPLEXY
     Dosage: 9 gm (4.5 gm, 2 in 1 D), Oral
  5. XYREM (500 MILLIGRAM/MILLILITERS, SOLUTION) (SODIUM OXYBATE) [Suspect]
     Indication: CATAPLEXY
     Dosage: 4.5 gm first dose, 3.5 gm second dose, Oral
  6. XYREM (500 MILLIGRAM/MILLILITERS, SOLUTION) (SODIUM OXYBATE) [Suspect]
     Indication: CATAPLEXY
     Dosage: 4.5 gm (4.5 gm, 1 in 1 D), Oral
     Dates: start: 201208
  7. MELOXICAM [Concomitant]
  8. ACETAMINOPHEN; HYDROCODONE BITARTRATE [Concomitant]
  9. CYCLOBENZAPRINE HYDROCHLORIDE [Concomitant]
  10. LISINOPRIL/HCTZ [Concomitant]
  11. ESTRATEST [Concomitant]
  12. ARMODAFINIL [Concomitant]
  13. PRAMIPEXOLE DIHYDROCHLORIDE [Concomitant]
  14. GLYCOPYRROLATE [Concomitant]

REACTIONS (6)
  - Intervertebral disc degeneration [None]
  - Dyspnoea [None]
  - Urinary retention [None]
  - Arthralgia [None]
  - Hypoaesthesia [None]
  - Pain in extremity [None]
